FAERS Safety Report 21574560 (Version 2)
Quarter: 2023Q1

REPORT INFORMATION
  Report Type: Spontaneous
  Country: ZA (occurrence: ZA)
  Receive Date: 20221109
  Receipt Date: 20230217
  Transmission Date: 20230418
  Serious: Yes (Other)
  Sender: FDA-Public Use
  Company Number: ZA-PFIZER INC-2017525127

PATIENT
  Age: 52 Year
  Sex: Male
  Weight: 89 kg

DRUGS (8)
  1. ENBREL [Suspect]
     Active Substance: ETANERCEPT
     Indication: Ankylosing spondylitis
     Dosage: 25 MG, 2X/WEEK
     Route: 065
     Dates: start: 20060601, end: 202105
  2. ENBREL [Suspect]
     Active Substance: ETANERCEPT
     Dosage: 50 MG, WEEKLY
     Route: 058
     Dates: start: 20060618, end: 202105
  3. ENBREL [Suspect]
     Active Substance: ETANERCEPT
     Dosage: 50 MG, WEEKLY
     Route: 058
     Dates: start: 200511, end: 202105
  4. ENBREL [Suspect]
     Active Substance: ETANERCEPT
     Dosage: 50 MG, WEEKLY
     Route: 058
     Dates: start: 202211
  5. ARCOXIA [Suspect]
     Active Substance: ETORICOXIB
     Indication: Product used for unknown indication
     Dosage: DAILY (90-120MG)
     Route: 065
     Dates: start: 2006
  6. HUMIRA [Suspect]
     Active Substance: ADALIMUMAB
     Indication: Product used for unknown indication
     Dosage: 40 MG, (EOW)
     Route: 058
     Dates: start: 202206, end: 202211
  7. COSENTYX [Concomitant]
     Active Substance: SECUKINUMAB
     Dosage: 150 MG, (W0,1,2,3,4 TRUN Q 4W)
     Route: 058
     Dates: start: 202105, end: 202206
  8. COSENTYX [Concomitant]
     Active Substance: SECUKINUMAB
     Dosage: UNK
     Dates: start: 202103

REACTIONS (3)
  - Cardiac ablation [Unknown]
  - Ankylosing spondylitis [Unknown]
  - Treatment failure [Unknown]

NARRATIVE: CASE EVENT DATE: 20180101
